FAERS Safety Report 7154058-X (Version None)
Quarter: 2010Q4

REPORT INFORMATION
  Report Type: 
  Country: None (occurrence: None)
  Receive Date: 20101213
  Receipt Date: 20101130
  Transmission Date: 20110411
  Serious: Yes (Other)
  Sender: FDA-Public Use
  Company Number: PHEH2009US05574

PATIENT
  Sex: Female
  Weight: 68 kg

DRUGS (5)
  1. FEMARA [Suspect]
     Indication: AROMATASE INHIBITION THERAPY
     Dosage: 2.5 MG, DAILY
     Route: 048
     Dates: start: 20070801
  2. COUMADIN [Concomitant]
     Indication: DEEP VEIN THROMBOSIS
     Dosage: 7.5 TO 10 MG DEPENDING
     Route: 048
     Dates: start: 20050101
  3. PAXIL [Concomitant]
     Indication: DEPRESSION
     Dosage: 20 MG, QD
     Route: 048
  4. ENULOSE [Concomitant]
     Indication: CONSTIPATION
     Dosage: 30 ML, TID
     Route: 048
     Dates: start: 20090101
  5. LORAZEPAM [Concomitant]
     Indication: ANXIETY
     Dosage: 1 MG, PRN
     Route: 048

REACTIONS (2)
  - AMNESIA [None]
  - HEPATIC CIRRHOSIS [None]
